FAERS Safety Report 11323703 (Version 2)
Quarter: 2015Q3

REPORT INFORMATION
  Report Type: Other
  Country: US (occurrence: US)
  Receive Date: 20150730
  Receipt Date: 20150902
  Transmission Date: 20151125
  Serious: No
  Sender: FDA-Public Use
  Company Number: US-LUNDBECK-DKLU2001655

PATIENT
  Age: 8 Year
  Sex: Female

DRUGS (5)
  1. CANNABIDIOL [Interacting]
     Active Substance: CANNABIDIOL
     Route: 065
  2. CANNABIDIOL [Interacting]
     Active Substance: CANNABIDIOL
     Indication: EPILEPSY
     Route: 065
  3. RUFINAMIDE [Concomitant]
     Active Substance: RUFINAMIDE
     Indication: EPILEPSY
     Route: 065
  4. LEVETIRACETAM. [Concomitant]
     Active Substance: LEVETIRACETAM
     Indication: EPILEPSY
     Route: 065
  5. CLOBAZAM [Suspect]
     Active Substance: CLOBAZAM
     Indication: EPILEPSY
     Dosage: 0.18 TO 2.24 MG/KG/DAY (MEAN, 1 MG/KG/DAY)
     Route: 065

REACTIONS (1)
  - Drug interaction [Unknown]
